FAERS Safety Report 19948688 (Version 1)
Quarter: 2021Q4

REPORT INFORMATION
  Report Type: Spontaneous
  Country: NL (occurrence: NL)
  Receive Date: 20211012
  Receipt Date: 20211012
  Transmission Date: 20220303
  Serious: Yes (Other)
  Sender: FDA-Public Use
  Company Number: None

PATIENT
  Age: 74 Year
  Sex: Male
  Weight: 80 kg

DRUGS (4)
  1. ALLOPURINOL [Suspect]
     Active Substance: ALLOPURINOL
     Indication: Gout
     Dosage: 200 MILLIGRAM DAILY; 1 X PER DAY 2 PIECES:THERAPY END DATE:ASKU
     Dates: start: 2020
  2. LISINOPRIL  / Brand name not specified [Concomitant]
     Dosage: 20 MG (MILLIGRAM)THERAPY START DATE:THERAPY END DATE:ASKU
  3. ACENOCOUMAROL/ Brand name not specified [Concomitant]
     Dosage: 1 MG (MILLIGRAM)THERAPY START DATE:THERAPY END DATE:ASKU
  4. SOTALOL  / Brand name not specified [Concomitant]
     Dosage: 40 MG (MILLIGRAM)THERAPY START DATE :THERAPY END DATE:AKU

REACTIONS (5)
  - Erectile dysfunction [Not Recovered/Not Resolved]
  - Haemorrhagic diathesis [Not Recovered/Not Resolved]
  - Haematoma [Not Recovered/Not Resolved]
  - Oropharyngeal pain [Not Recovered/Not Resolved]
  - Limb discomfort [Not Recovered/Not Resolved]

NARRATIVE: CASE EVENT DATE: 20210301
